FAERS Safety Report 5875697-X (Version None)
Quarter: 2008Q3

REPORT INFORMATION
  Report Type: 
  Country: None (occurrence: None)
  Receive Date: 20080905
  Receipt Date: 20080822
  Transmission Date: 20090109
  Serious: Yes (Hospitalization, Other)
  Sender: FDA-Public Use
  Company Number: PERC20080081

PATIENT
  Sex: Female

DRUGS (4)
  1. PERCOCET [Suspect]
  2. AMBIEN [Suspect]
  3. LORTAB [Suspect]
  4. PHENERGAN HCL [Suspect]

REACTIONS (2)
  - OVERDOSE [None]
  - THERAPEUTIC AGENT TOXICITY [None]
